FAERS Safety Report 26184959 (Version 1)
Quarter: 2025Q4

REPORT INFORMATION
  Report Type: Spontaneous
  Country: EU (occurrence: EU)
  Receive Date: 20251222
  Receipt Date: 20251222
  Transmission Date: 20260118
  Serious: Yes (Hospitalization, Other)
  Sender: AUROBINDO
  Company Number: EU-AFSSAPS-BX2025001874

PATIENT
  Age: 0 Day
  Sex: Male
  Weight: 3.18 kg

DRUGS (2)
  1. SERTRALINE HYDROCHLORIDE [Suspect]
     Active Substance: SERTRALINE HYDROCHLORIDE
     Indication: Depression
     Dosage: 150 MILLIGRAM, ONCE A DAY
     Route: 065
     Dates: start: 20250320, end: 20251122
  2. MIFEPRISTONE [Concomitant]
     Active Substance: MIFEPRISTONE
     Indication: Product used for unknown indication
     Dosage: UNK
     Route: 065

REACTIONS (2)
  - Neonatal pulmonary hypertension [Not Recovered/Not Resolved]
  - Maternal exposure during pregnancy [Recovered/Resolved]

NARRATIVE: CASE EVENT DATE: 20251122
